FAERS Safety Report 9449758 (Version 1)
Quarter: 2013Q3

REPORT INFORMATION
  Report Type: Spontaneous
  Country: US (occurrence: US)
  Receive Date: 20130809
  Receipt Date: 20130809
  Transmission Date: 20140515
  Serious: Yes (Hospitalization)
  Sender: FDA-Public Use
  Company Number: US-BAYER-2013-095082

PATIENT
  Age: 18 Year
  Sex: Female

DRUGS (7)
  1. YASMIN [Suspect]
  2. ALLEGRA-D [Concomitant]
     Indication: MULTIPLE ALLERGIES
     Dosage: RARELY TAKES
  3. DIFLUCAN [Concomitant]
     Dosage: 150 MG, UNK
  4. LEVAQUIN [Concomitant]
     Dosage: 500 MG, UNK
     Dates: start: 20031124
  5. METRONIDAZOLE [Concomitant]
     Dosage: 500 MG, UNK
  6. PLAN B [Concomitant]
     Dosage: UNK
     Dates: start: 20031020
  7. NORFLEX [Concomitant]
     Dosage: 60 MG, UNK
     Route: 030

REACTIONS (1)
  - Pulmonary embolism [None]
